FAERS Safety Report 7649733 (Version 4)
Quarter: 2012Q4

REPORT INFORMATION
  Report Type: 
  Country: US (occurrence: US)
  Receive Date: 20101029
  Receipt Date: 20121105
  Transmission Date: 20130627
  Serious: Yes (Hospitalization, Other)
  Sender: FDA-Public Use
  Company Number: US-BAYER-201038360NA

PATIENT
  Age: 34 Year
  Sex: Female
  Weight: 86.17 kg

DRUGS (5)
  1. YASMIN [Suspect]
     Indication: MENSTRUAL CYCLE MANAGEMENT
     Route: 048
     Dates: start: 2001, end: 2006
  2. ALBUTEROL [Concomitant]
     Dosage: UNK
     Dates: start: 2002, end: 2008
  3. VICODIN [Concomitant]
     Route: 048
  4. TORADOL [Concomitant]
     Route: 048
  5. NEXIUM [Concomitant]
     Dosage: 40 mg, daily
     Route: 048

REACTIONS (6)
  - Cholecystitis chronic [None]
  - Gallbladder disorder [Unknown]
  - Pain [Unknown]
  - Atelectasis [None]
  - Impaired gastric emptying [None]
  - Biliary tract disorder [None]
